FAERS Safety Report 8894863 (Version 2)
Quarter: 2012Q4

REPORT INFORMATION
  Report Type: 
  Country: CA (occurrence: CA)
  Receive Date: 20121108
  Receipt Date: 20121128
  Transmission Date: 20130627
  Serious: Yes (Other)
  Sender: FDA-Public Use
  Company Number: PHHY2012CA102321

PATIENT
  Age: 70 Year
  Sex: Female

DRUGS (4)
  1. ACLASTA [Suspect]
     Indication: OSTEOPOROSIS
     Dosage: UNK UKN, UNK
     Route: 042
     Dates: start: 20120125
  2. CALCIUM [Concomitant]
  3. VIT D [Concomitant]
  4. ADVAIR DISKUS [Concomitant]

REACTIONS (4)
  - Acute respiratory failure [Unknown]
  - Cardiac failure acute [Unknown]
  - Oedema peripheral [Unknown]
  - Quality of life decreased [Unknown]
